FAERS Safety Report 12759041 (Version 2)
Quarter: 2016Q4

REPORT INFORMATION
  Report Type: Spontaneous
  Country: US (occurrence: US)
  Receive Date: 20160919
  Receipt Date: 20161027
  Transmission Date: 20170207
  Serious: Yes (Other)
  Sender: FDA-Public Use
  Company Number: US-PFIZER INC-2016428672

PATIENT
  Age: 69 Year
  Sex: Female
  Weight: 99.8 kg

DRUGS (12)
  1. BROVANA [Concomitant]
     Active Substance: ARFORMOTEROL TARTRATE
     Indication: CHRONIC OBSTRUCTIVE PULMONARY DISEASE
     Dosage: 2 ML, 2X/DAY (16 MCG/2ML INHALATION NEBU SOLN; INHALATION, MAY MIX WITH BUDESONIDE FOR NEBULIZATION)
     Route: 055
  2. CALCIUM [Concomitant]
     Active Substance: CALCIUM
     Dosage: 500 MG, DAILY
     Route: 048
  3. CLARITIN-D 12 HOUR [Concomitant]
     Active Substance: LORATADINE\PSEUDOEPHEDRINE SULFATE
     Dosage: 1 DF, DAILY (LORATIDINE: 10MG, PSEUDOPHEDRINE: 240MG)
     Route: 048
  4. AMBIEN [Concomitant]
     Active Substance: ZOLPIDEM TARTRATE
     Indication: INSOMNIA
     Dosage: 10 MG, AS NEEDED (TAKE 1 TAB BY MOUTH EVERY BEDTIME AS NEEDED;MAX DAILY AMOUNT:10 MG)
     Route: 048
  5. VENTOLIN [Concomitant]
     Active Substance: ALBUTEROL SULFATE
     Dosage: 3 ML, 3X/DAY (2.5 MG/3ML) 0.083% INHALATION NEBU SOLN; SVN ROUTE EVERY EIGHT HOURS)
  6. MOTRIN [Concomitant]
     Active Substance: IBUPROFEN
     Indication: PAIN
     Dosage: 400 MG, AS NEEDED (EVERY SIX HOURS AS NEEDED)
     Route: 048
  7. PROVENTIL [Concomitant]
     Active Substance: ALBUTEROL
     Dosage: 3 ML, 3X/DAY (2.5 MG/3ML) 0.083% INHALATION NEBU SOLN; SVN ROUTE EVERY EIGHT HOURS)
     Route: 055
  8. ASPIRIN 81 [Concomitant]
     Active Substance: ASPIRIN
     Dosage: 81 MG, DAILY
     Route: 048
  9. VFEND [Suspect]
     Active Substance: VORICONAZOLE
     Indication: PNEUMONIA FUNGAL
     Dosage: 200 MG, 2X/DAY
     Route: 048
  10. ROBITUSSIN AC [Concomitant]
     Active Substance: CODEINE PHOSPHATE\GUAIFENESIN
     Indication: COUGH
     Dosage: 10 ML, AS NEEDED (GUAIFENESIN:100MG,CODEINE:10 MG)/5ML;EVERY 6 HOURS AS NEEDED; MAX DAILY AMOUT:40ML
     Route: 048
  11. KLONOPIN [Concomitant]
     Active Substance: CLONAZEPAM
     Dosage: 0.5 MG, 2X/DAY (MAX. DAILY AMOUNT; 1 MG)
     Route: 048
  12. PROTONIX [Concomitant]
     Active Substance: PANTOPRAZOLE SODIUM
     Dosage: 40 MG, DAILY
     Route: 048

REACTIONS (2)
  - Bronchitis [Unknown]
  - Disease recurrence [Unknown]
